FAERS Safety Report 15866646 (Version 1)
Quarter: 2019Q1

REPORT INFORMATION
  Report Type: Spontaneous
  Country: ES (occurrence: ES)
  Receive Date: 20190125
  Receipt Date: 20190125
  Transmission Date: 20190417
  Serious: Yes (Other)
  Sender: FDA-Public Use
  Company Number: ES-TAKEDA-2019TEU000503

PATIENT
  Age: 74 Year
  Sex: Female

DRUGS (2)
  1. ATORVASTATIN [Concomitant]
     Active Substance: ATORVASTATIN
     Dosage: 10 MILLIGRAM, QD
  2. INCRESYNC [Suspect]
     Active Substance: ALOGLIPTIN BENZOATE\PIOGLITAZONE HYDROCHLORIDE
     Indication: TYPE 2 DIABETES MELLITUS
     Dosage: 12.5/30MILLIGRAM QD
     Route: 048
     Dates: start: 20181031, end: 20181107

REACTIONS (4)
  - Vasculitis [Unknown]
  - Hypersensitivity [Unknown]
  - Rash pruritic [Unknown]
  - Rash erythematous [Unknown]

NARRATIVE: CASE EVENT DATE: 20181101
